FAERS Safety Report 8506736-5 (Version None)
Quarter: 2012Q3

REPORT INFORMATION
  Report Type: 
  Country: None (occurrence: None)
  Receive Date: 20120712
  Receipt Date: 20120711
  Transmission Date: 20120928
  Serious: Yes (Hospitalization)
  Sender: FDA-Public Use
  Company Number: JP-009507513-1207JPN002605

PATIENT

DRUGS (2)
  1. JANUVIA [Suspect]
     Dosage: DAILY DOSE UNKNOWN
     Route: 048
  2. AMIODARONE HYDROCHLORIDE [Suspect]
     Dosage: DAILY DOSE UNKNOWN
     Route: 065

REACTIONS (1)
  - INTERSTITIAL LUNG DISEASE [None]
